FAERS Safety Report 10916992 (Version 1)
Quarter: 2015Q1

REPORT INFORMATION
  Report Type: Spontaneous
  Country: AU (occurrence: AU)
  Receive Date: 20150316
  Receipt Date: 20150316
  Transmission Date: 20150721
  Serious: Yes (Other)
  Sender: FDA-Public Use
  Company Number: AU-MERCK-1503AUS005849

PATIENT
  Sex: Female

DRUGS (6)
  1. MONTELUKAST SODIUM. [Suspect]
     Active Substance: MONTELUKAST SODIUM
     Dosage: UNK
     Route: 048
  2. METHOTREXATE [Suspect]
     Active Substance: METHOTREXATE
     Dosage: UNK
     Route: 048
  3. PLAQUENIL [Suspect]
     Active Substance: HYDROXYCHLOROQUINE SULFATE
     Dosage: UNK
  4. CYCLOSPORINE. [Suspect]
     Active Substance: CYCLOSPORINE
     Dosage: UNK
  5. CYCLOPHOSPHAMIDE. [Suspect]
     Active Substance: CYCLOPHOSPHAMIDE
     Dosage: UNK
  6. DAPSONE. [Suspect]
     Active Substance: DAPSONE
     Dosage: UNK

REACTIONS (7)
  - Off label use [Unknown]
  - Cushing^s syndrome [Unknown]
  - Hypertension [Unknown]
  - Drug ineffective [Unknown]
  - Diabetes mellitus [Unknown]
  - Drug dependence [Unknown]
  - Ill-defined disorder [Unknown]
